FAERS Safety Report 5105215-5 (Version None)
Quarter: 2006Q3

REPORT INFORMATION
  Report Type: 
  Country: None (occurrence: None)
  Receive Date: 20060911
  Receipt Date: 20060825
  Transmission Date: 20061208
  Serious: Yes (Other)
  Sender: FDA-Public Use
  Company Number: 229022

PATIENT
  Age: 12 Year
  Sex: Male
  Weight: 41.6 kg

DRUGS (1)
  1. NUTROPIN AQ [Suspect]
     Indication: GROWTH HORMONE DEFICIENCY
     Dosage: 1.5 MG, 1/WEEK, SUBCUTANEOUS
     Route: 058
     Dates: start: 20050201

REACTIONS (3)
  - OSTEOCHONDROMA [None]
  - PAIN IN EXTREMITY [None]
  - SKIN LESION [None]
